FAERS Safety Report 11233389 (Version 3)
Quarter: 2015Q3

REPORT INFORMATION
  Report Type: Spontaneous
  Country: US (occurrence: US)
  Receive Date: 20150702
  Receipt Date: 20150814
  Transmission Date: 20151125
  Serious: No
  Sender: FDA-Public Use
  Company Number: US-AMGEN-USASP2015063684

PATIENT
  Age: 52 Year
  Sex: Female

DRUGS (4)
  1. ENBREL [Suspect]
     Active Substance: ETANERCEPT
     Dosage: 50 MG/ML, QWK
     Route: 058
     Dates: start: 20130619, end: 201401
  2. ENBREL [Suspect]
     Active Substance: ETANERCEPT
     Dosage: 50 MG/ML, QWK
     Route: 058
     Dates: start: 20140207, end: 201410
  3. ENBREL [Suspect]
     Active Substance: ETANERCEPT
     Indication: PSORIASIS
     Dosage: 50 MG/ML, QWK
     Route: 058
     Dates: start: 20110302, end: 201208
  4. ENBREL [Suspect]
     Active Substance: ETANERCEPT
     Dosage: 50 MG/ML, QWK
     Route: 058
     Dates: start: 20150610, end: 201507

REACTIONS (7)
  - Injection site erythema [Recovered/Resolved]
  - Pruritus [Unknown]
  - Intentional product misuse [Recovered/Resolved]
  - Psoriasis [Unknown]
  - Laboratory test abnormal [Unknown]
  - Injection site pain [Unknown]
  - Weight decreased [Unknown]

NARRATIVE: CASE EVENT DATE: 201409
